FAERS Safety Report 21867653 (Version 1)
Quarter: 2023Q1

REPORT INFORMATION
  Report Type: Spontaneous
  Country: CA (occurrence: CA)
  Receive Date: 20230116
  Receipt Date: 20230116
  Transmission Date: 20230417
  Serious: Yes (Hospitalization, Other)
  Sender: FDA-Public Use
  Company Number: CA-002147023-NVSC2023CA005880

PATIENT
  Age: 66 Year
  Sex: Female

DRUGS (6)
  1. METHOTREXATE [Interacting]
     Active Substance: METHOTREXATE
     Indication: Rheumatoid arthritis
     Dosage: UNK
     Route: 065
  2. DEXAMETHASONE [Interacting]
     Active Substance: DEXAMETHASONE
     Indication: Immune thrombocytopenia
     Dosage: UNK
     Route: 065
  3. RITUXIMAB [Interacting]
     Active Substance: RITUXIMAB
     Indication: Immune thrombocytopenia
     Dosage: 370 MG/M2
     Route: 065
  4. ELTROMBOPAG [Interacting]
     Active Substance: ELTROMBOPAG
     Indication: Immune thrombocytopenia
     Dosage: 1 DOSAGE FORM (TABLET)
     Route: 048
  5. ELTROMBOPAG [Interacting]
     Active Substance: ELTROMBOPAG
     Dosage: UNK (UNKNOWN FORMULATION)
     Route: 065
  6. PREDNISONE [Interacting]
     Active Substance: PREDNISONE
     Indication: Immune thrombocytopenia
     Route: 065

REACTIONS (9)
  - COVID-19 [Unknown]
  - Drug interaction [Unknown]
  - Fatigue [Unknown]
  - Platelet count decreased [Unknown]
  - Platelet count increased [Unknown]
  - SARS-CoV-2 test positive [Unknown]
  - Product prescribing error [Unknown]
  - Wrong technique in product usage process [Unknown]
  - Drug ineffective [Unknown]
